FAERS Safety Report 12296346 (Version 1)
Quarter: 2016Q2

REPORT INFORMATION
  Report Type: Spontaneous
  Country: CN (occurrence: CN)
  Receive Date: 20160422
  Receipt Date: 20160422
  Transmission Date: 20160815
  Serious: Yes (Death, Other)
  Sender: FDA-Public Use
  Company Number: PHHY2016CN053184

PATIENT
  Age: 70 Year
  Sex: Female

DRUGS (9)
  1. THYMOGLOBULIN [Concomitant]
     Active Substance: LAPINE T-LYMPHOCYTE IMMUNE GLOBULIN
     Indication: APLASTIC ANAEMIA
     Dosage: 200 MG, QD, (DAY 1-3)
     Route: 065
  2. CICLOSPORIN [Suspect]
     Active Substance: CYCLOSPORINE
     Indication: APLASTIC ANAEMIA
     Dosage: UNK
     Route: 048
  3. THYMOGLOBULIN [Concomitant]
     Active Substance: LAPINE T-LYMPHOCYTE IMMUNE GLOBULIN
     Dosage: 200 MG, QD, (DAY 4-5)
     Route: 065
  4. METHOTREXATE [Concomitant]
     Active Substance: METHOTREXATE
     Indication: LYMPHOCYTIC LEUKAEMIA
     Dosage: 15 MG, QW
     Route: 065
  5. ITRACONAZOLE. [Suspect]
     Active Substance: ITRACONAZOLE
     Indication: INFECTION PROPHYLAXIS
     Route: 048
  6. METOPROLOL. [Concomitant]
     Active Substance: METOPROLOL
     Indication: CARDIAC FIBRILLATION
     Route: 065
  7. AMIODARONE [Concomitant]
     Active Substance: AMIODARONE
     Indication: CARDIAC FIBRILLATION
     Route: 065
  8. CICLOSPORIN [Suspect]
     Active Substance: CYCLOSPORINE
     Dosage: 75 MG, Q12H
     Route: 048
  9. NORFLOXACIN [Suspect]
     Active Substance: NORFLOXACIN
     Indication: INFECTION PROPHYLAXIS
     Route: 065

REACTIONS (5)
  - Infection [Fatal]
  - Lung infection [Recovered/Resolved]
  - Pyrexia [Fatal]
  - Drug ineffective [Unknown]
  - Product use issue [Unknown]
